FAERS Safety Report 6667283-9 (Version None)
Quarter: 2010Q2

REPORT INFORMATION
  Report Type: 
  Country: None (occurrence: None)
  Receive Date: 20100401
  Receipt Date: 20100316
  Transmission Date: 20101027
  Serious: Yes (Disabling)
  Sender: FDA-Public Use
  Company Number: IMP_04942_2010

PATIENT
  Sex: Female

DRUGS (4)
  1. BUPROPION HCL [Suspect]
     Indication: ANXIETY
     Dosage: DF, (DF)
     Dates: start: 20090101, end: 20090101
  2. BUPROPION HCL [Suspect]
     Indication: DEPRESSION
     Dosage: DF, (DF)
     Dates: start: 20090101, end: 20090101
  3. BUPROPION HCL [Suspect]
     Indication: ANXIETY
     Dosage: DF, (DF)
     Dates: start: 20091201, end: 20100201
  4. BUPROPION HCL [Suspect]
     Indication: DEPRESSION
     Dosage: DF, (DF)
     Dates: start: 20091201, end: 20100201

REACTIONS (6)
  - ABDOMINAL DISCOMFORT [None]
  - ABDOMINAL PAIN [None]
  - DIZZINESS [None]
  - FATIGUE [None]
  - FEELING ABNORMAL [None]
  - IMPAIRED WORK ABILITY [None]
